FAERS Safety Report 9766129 (Version 2)
Quarter: 2014Q1

REPORT INFORMATION
  Report Type: Spontaneous
  Country: US (occurrence: US)
  Receive Date: 20131217
  Receipt Date: 20140116
  Transmission Date: 20141002
  Serious: Yes (Death, Life-Threatening, Hospitalization)
  Sender: FDA-Public Use
  Company Number: US-INCYTE CORPORATION-2013IN003016

PATIENT
  Age: 76 Year
  Sex: Male
  Weight: 81.63 kg

DRUGS (5)
  1. JAKAFI [Suspect]
     Indication: MYELOFIBROSIS
     Dosage: 15 MG, BID
     Route: 048
     Dates: start: 20130827, end: 201312
  2. DANAZOL [Concomitant]
  3. BACTRIM [Concomitant]
  4. PREDNISONE [Concomitant]
  5. HYDREA [Concomitant]

REACTIONS (2)
  - Lung infiltration [Fatal]
  - Antineutrophil cytoplasmic antibody positive [Fatal]
